FAERS Safety Report 25044907 (Version 3)
Quarter: 2025Q3

REPORT INFORMATION
  Report Type: Spontaneous
  Country: AR (occurrence: AR)
  Receive Date: 20250306
  Receipt Date: 20250810
  Transmission Date: 20251020
  Serious: Yes (Hospitalization, Disabling, Other)
  Sender: ALEXION PHARMACEUTICALS
  Company Number: AR-AstraZeneca-CH-00816896A

PATIENT
  Age: 40 Year
  Sex: Female
  Weight: 60 kg

DRUGS (3)
  1. SAPHNELO [Suspect]
     Active Substance: ANIFROLUMAB-FNIA
     Indication: Systemic lupus erythematosus
     Dosage: 300 MILLIGRAM, Q4W
     Dates: start: 20250131
  2. HYDROXYCHLOROQUINE [Concomitant]
     Active Substance: HYDROXYCHLOROQUINE
     Indication: Systemic lupus erythematosus
     Dosage: 400 MILLIGRAM, QD
     Route: 065
  3. Leflunomida sc [Concomitant]
     Indication: Systemic lupus erythematosus
     Dosage: 20 MILLIGRAM, QD
     Route: 065

REACTIONS (5)
  - Neuromyelitis optica spectrum disorder [Unknown]
  - Optic neuritis [Not Recovered/Not Resolved]
  - Macular thickening [Unknown]
  - Detachment of macular retinal pigment epithelium [Unknown]
  - Papilloedema [Unknown]

NARRATIVE: CASE EVENT DATE: 20250207
